FAERS Safety Report 12633024 (Version 2)
Quarter: 2016Q3

REPORT INFORMATION
  Report Type: Spontaneous
  Country: US (occurrence: US)
  Receive Date: 20160808
  Receipt Date: 20160808
  Transmission Date: 20161109
  Serious: No
  Sender: FDA-Public Use
  Company Number: US-BEH-2016058161

PATIENT
  Sex: Female
  Weight: 89 kg

DRUGS (23)
  1. DIPHENHYDRAMINE. [Concomitant]
     Active Substance: DIPHENHYDRAMINE
  2. PAROXETINE. [Concomitant]
     Active Substance: PAROXETINE
  3. ASPIRIN. [Concomitant]
     Active Substance: ASPIRIN
  4. FISH OIL [Concomitant]
     Active Substance: FISH OIL
  5. FUROSEMIDE. [Concomitant]
     Active Substance: FUROSEMIDE
  6. LIDOCAINE. [Concomitant]
     Active Substance: LIDOCAINE
  7. CRESTOR [Concomitant]
     Active Substance: ROSUVASTATIN CALCIUM
  8. METFORMIN [Concomitant]
     Active Substance: METFORMIN HYDROCHLORIDE
  9. CARVEDILOL. [Concomitant]
     Active Substance: CARVEDILOL
  10. LOSARTAN. [Concomitant]
     Active Substance: LOSARTAN
  11. ALPRAZOLAM. [Concomitant]
     Active Substance: ALPRAZOLAM
  12. EPIPEN [Concomitant]
     Active Substance: EPINEPHRINE
  13. HIZENTRA [Suspect]
     Active Substance: HUMAN IMMUNOGLOBULIN G
     Indication: IMMUNODEFICIENCY COMMON VARIABLE
     Route: 058
  14. MULTIVITAMIN [Concomitant]
     Active Substance: VITAMINS
  15. PLAVIX [Concomitant]
     Active Substance: CLOPIDOGREL BISULFATE
  16. FENOFIBRATE. [Concomitant]
     Active Substance: FENOFIBRATE
  17. BURPOPION XL [Concomitant]
  18. CLONIDINE. [Concomitant]
     Active Substance: CLONIDINE
  19. VICODIN [Concomitant]
     Active Substance: ACETAMINOPHEN\HYDROCODONE BITARTRATE
  20. INDAPAMIDE. [Concomitant]
     Active Substance: INDAPAMIDE
  21. FIBER LAX [Concomitant]
     Active Substance: CALCIUM POLYCARBOPHIL
  22. LISINOPRIL. [Concomitant]
     Active Substance: LISINOPRIL
  23. DICLOFENAC [Concomitant]
     Active Substance: DICLOFENAC

REACTIONS (1)
  - Injection site bruising [Unknown]
